FAERS Safety Report 11636897 (Version 1)
Quarter: 2015Q4

REPORT INFORMATION
  Report Type: Spontaneous
  Country: US (occurrence: None)
  Receive Date: 20151015
  Receipt Date: 20151015
  Transmission Date: 20160304
  Serious: No
  Sender: FDA-Public Use
  Company Number: None

PATIENT
  Age: 73 Year
  Sex: Male
  Weight: 79.38 kg

DRUGS (9)
  1. GUAIFENESIN AC [Suspect]
     Active Substance: CODEINE PHOSPHATE\GUAIFENESIN
     Indication: COUGH
     Dosage: ONE TSP; 4 TO 6 HOURS
     Route: 048
     Dates: start: 20151012, end: 20151013
  2. ATENOLOL. [Concomitant]
     Active Substance: ATENOLOL
  3. LEVOTHYROXIN [Concomitant]
     Active Substance: LEVOTHYROXINE
  4. RAMIPRIL. [Concomitant]
     Active Substance: RAMIPRIL
  5. ASPIRIN 325 [Concomitant]
  6. PRAVASTATIN [Concomitant]
     Active Substance: PRAVASTATIN\PRAVASTATIN SODIUM
  7. DOXAZOSIN [Concomitant]
     Active Substance: DOXAZOSIN\DOXAZOSIN MESYLATE
  8. CENTRUM SILVER VITAMINS [Concomitant]
  9. VIT D 400 [Concomitant]

REACTIONS (1)
  - Pain in extremity [None]

NARRATIVE: CASE EVENT DATE: 20151014
